FAERS Safety Report 20664562 (Version 3)
Quarter: 2024Q4

REPORT INFORMATION
  Report Type: Spontaneous
  Country: IN (occurrence: IN)
  Receive Date: 20220401
  Receipt Date: 20241212
  Transmission Date: 20250114
  Serious: Yes (Other)
  Sender: PFIZER
  Company Number: IN-PFIZER INC-202200454701

PATIENT
  Age: 39 Year
  Sex: Female

DRUGS (4)
  1. CRIZOTINIB [Suspect]
     Active Substance: CRIZOTINIB
     Indication: Lung adenocarcinoma
     Dosage: UNK
     Route: 048
     Dates: start: 2019, end: 20220224
  2. CRIZOTINIB [Suspect]
     Active Substance: CRIZOTINIB
     Dosage: 250 MG, 2X/DAY
     Route: 048
     Dates: start: 20190301
  3. CRIZOTINIB [Suspect]
     Active Substance: CRIZOTINIB
     Dosage: 250 MG, 1X/DAY
     Route: 048
     Dates: start: 20191025
  4. CRIZOTINIB [Suspect]
     Active Substance: CRIZOTINIB
     Dosage: 200 MG, 1X/DAY
     Route: 048
     Dates: start: 20200803

REACTIONS (28)
  - Central nervous system lesion [Unknown]
  - Electrocardiogram QT prolonged [Unknown]
  - Mean cell volume decreased [Unknown]
  - Mean cell haemoglobin decreased [Unknown]
  - Red cell distribution width increased [Unknown]
  - Blood albumin decreased [Unknown]
  - Albumin globulin ratio decreased [Unknown]
  - Diarrhoea [Unknown]
  - Dyskinesia [Unknown]
  - Dyspepsia [Unknown]
  - Insomnia [Unknown]
  - Cough [Unknown]
  - Weight increased [Unknown]
  - Heavy menstrual bleeding [Unknown]
  - Pain [Unknown]
  - Oedema peripheral [Unknown]
  - Nausea [Unknown]
  - Asthenia [Unknown]
  - Aspartate aminotransferase increased [Unknown]
  - Alanine aminotransferase increased [Unknown]
  - Upper respiratory tract infection [Unknown]
  - Liver function test increased [Unknown]
  - Weight decreased [Unknown]
  - Arthralgia [Unknown]
  - Pain in extremity [Unknown]
  - Osteoporosis [Unknown]
  - Sinus bradycardia [Unknown]
  - Neoplasm progression [Unknown]

NARRATIVE: CASE EVENT DATE: 20190622
